FAERS Safety Report 9559743 (Version 1)
Quarter: 2013Q3

REPORT INFORMATION
  Report Type: Spontaneous
  Country: US (occurrence: None)
  Receive Date: 20130906
  Receipt Date: 20130906
  Transmission Date: 20140515
  Serious: Yes (Hospitalization)
  Sender: FDA-Public Use
  Company Number: 163-POMAL-13074858

PATIENT
  Age: 50 Year
  Sex: Female

DRUGS (4)
  1. POMALYST (POMALIDOMIDE) (2 MILLIGRAM, CAPSULES) [Suspect]
     Indication: PLASMA CELL MYELOMA
     Dosage: 2 MG, 1 IN 1 D, PO
     Route: 048
     Dates: start: 20130422, end: 20130708
  2. CYMBALTA (DULOXETINE HYDROCHLORIDE) [Concomitant]
  3. CYCLOPHOSPHAMIDE (CYCLOPHOSPHAMIDE) [Concomitant]
  4. ACYCLOVIR (ACICLOVIR) [Concomitant]

REACTIONS (2)
  - Plasma cell myeloma [None]
  - Plasmacytoma [None]
